FAERS Safety Report 10614793 (Version 1)
Quarter: 2014Q4

REPORT INFORMATION
  Report Type: Spontaneous
  Country: US (occurrence: US)
  Receive Date: 20141201
  Receipt Date: 20141201
  Transmission Date: 20150529
  Serious: Yes (Other)
  Sender: FDA-Public Use
  Company Number: US-AMGEN-USASP2014091095

PATIENT
  Age: 41 Year
  Sex: Female

DRUGS (1)
  1. ENBREL [Suspect]
     Active Substance: ETANERCEPT
     Indication: RHEUMATOID ARTHRITIS
     Dosage: 50 MG, QWK
     Route: 065
     Dates: start: 20140315

REACTIONS (8)
  - Ligament injury [Recovered/Resolved]
  - Rheumatoid arthritis [Not Recovered/Not Resolved]
  - Wound [Recovered/Resolved]
  - Impaired healing [Recovered/Resolved]
  - Procedural pain [Recovered/Resolved]
  - Fibromyalgia [Not Recovered/Not Resolved]
  - Haematoma [Recovered/Resolved]
  - Suture rupture [Recovered/Resolved]

NARRATIVE: CASE EVENT DATE: 2014
